FAERS Safety Report 10066979 (Version 1)
Quarter: 2014Q2

REPORT INFORMATION
  Report Type: Spontaneous
  Country: FR (occurrence: FR)
  Receive Date: 20140409
  Receipt Date: 20140409
  Transmission Date: 20141212
  Serious: Yes (Hospitalization)
  Sender: FDA-Public Use
  Company Number: FR-ROCHE-1377502

PATIENT
  Age: 53 Year
  Sex: Female

DRUGS (6)
  1. ROACTEMRA [Suspect]
     Indication: RHEUMATOID ARTHRITIS
     Route: 042
     Dates: start: 2010, end: 20131120
  2. SPECIAFOLDINE [Concomitant]
  3. CRESTOR [Concomitant]
     Route: 048
  4. INEXIUM [Concomitant]
     Route: 048
  5. LEVOTHYROX [Concomitant]
     Route: 048
  6. METOJECT [Concomitant]
     Route: 065

REACTIONS (1)
  - Diverticulum intestinal [Recovered/Resolved]
